FAERS Safety Report 19002946 (Version 1)
Quarter: 2021Q1

REPORT INFORMATION
  Report Type: Other
  Country: GB (occurrence: GB)
  Receive Date: 20210312
  Receipt Date: 20210312
  Transmission Date: 20210420
  Serious: Yes (Other)
  Sender: FDA-Public Use
  Company Number: GB-ROCHE-2758176

PATIENT
  Sex: Male

DRUGS (1)
  1. ESBRIET [Suspect]
     Active Substance: PIRFENIDONE
     Indication: IDIOPATHIC PULMONARY FIBROSIS
     Dosage: 3 TABLETS TO BE TAKEN 3 TIMES A DAY
     Route: 048
     Dates: start: 20201101

REACTIONS (4)
  - Somnolence [Unknown]
  - Malaise [Unknown]
  - Incorrect dose administered [Unknown]
  - Nausea [Unknown]
